FAERS Safety Report 4408531-5 (Version None)
Quarter: 2004Q3

REPORT INFORMATION
  Report Type: 
  Country: None (occurrence: None)
  Receive Date: 20040722
  Receipt Date: 20040716
  Transmission Date: 20050211
  Serious: Yes (Other)
  Sender: FDA-Public Use
  Company Number: US-JNJFOC-20040303265

PATIENT
  Age: 70 Year
  Sex: Female
  Weight: 63.5036 kg

DRUGS (10)
  1. NATRECOR [Suspect]
     Indication: CARDIAC FAILURE CONGESTIVE
     Dosage: SEE IMAGE, INTRAVENOUS
     Route: 042
     Dates: start: 20030101
  2. HUMULIN 70/30 [Suspect]
     Indication: DIABETES MELLITUS
     Dosage: 2 UG/KG, INTRAVENOUS
     Route: 042
  3. AMBIEN [Concomitant]
  4. WARFARIN (WARFARIN) [Concomitant]
  5. ISOSORBIDE DINITRATE [Concomitant]
  6. DIGOXIN [Concomitant]
  7. K-DUR 10 [Concomitant]
  8. SPIRONOLACTONE [Concomitant]
  9. TOPROLOL (METOPROLOL SUCCINATE) [Concomitant]
  10. LISINOPRIL [Concomitant]

REACTIONS (3)
  - ASTHENIA [None]
  - HYPOGLYCAEMIA [None]
  - URINARY INCONTINENCE [None]
